FAERS Safety Report 9600846 (Version 1)
Quarter: 2013Q4

REPORT INFORMATION
  Report Type: Spontaneous
  Country: US (occurrence: US)
  Receive Date: 20131004
  Receipt Date: 20131004
  Transmission Date: 20140711
  Serious: No
  Sender: FDA-Public Use
  Company Number: US-AMGEN-USASP2013038180

PATIENT
  Age: 38 Year
  Sex: Female
  Weight: 58.05 kg

DRUGS (2)
  1. ENBREL [Suspect]
     Indication: PRODUCT USED FOR UNKNOWN INDICATION
     Dosage: 50 MG, 2 TIMES/WK
     Route: 058
  2. AMLODIPINE [Concomitant]
     Dosage: 2.5 MG, UNK

REACTIONS (1)
  - Memory impairment [Unknown]
